FAERS Safety Report 22147799 (Version 2)
Quarter: 2023Q2

REPORT INFORMATION
  Report Type: Spontaneous
  Country: FR (occurrence: FR)
  Receive Date: 20230328
  Receipt Date: 20230404
  Transmission Date: 20230722
  Serious: Yes (Other)
  Sender: FDA-Public Use
  Company Number: FR-GLAXOSMITHKLINE-FR2022EME187177

PATIENT
  Age: 5 Year
  Sex: Female

DRUGS (2)
  1. IRINOTECAN [Suspect]
     Active Substance: IRINOTECAN
     Indication: Product used for unknown indication
     Dosage: UNK
  2. NIRAPARIB [Suspect]
     Active Substance: NIRAPARIB
     Indication: Pinealoblastoma
     Dosage: 100 MG, QD

REACTIONS (9)
  - Hemiparesis [None]
  - Malignant neoplasm progression [None]
  - Meningeal disorder [None]
  - Neutrophil count decreased [None]
  - Fatigue [None]
  - Vomiting [Recovering/Resolving]
  - Headache [None]
  - Off label use [None]
  - Product prescribing issue [None]
